FAERS Safety Report 4891429-6 (Version None)
Quarter: 2005Q4

REPORT INFORMATION
  Report Type: 
  Country: None (occurrence: None)
  Receive Date: 20051220
  Receipt Date: 20050829
  Transmission Date: 20060501
  Serious: Yes (Other)
  Sender: FDA-Public Use
  Company Number: 415981

PATIENT
  Age: 66 Year
  Sex: Female
  Weight: 62.6 kg

DRUGS (7)
  1. BONIVA [Suspect]
     Dosage: 150 MG 1 PER MONTH ORAL
     Route: 048
     Dates: start: 20050801
  2. COUMADIN [Concomitant]
  3. TOPROL (METOPROLOL TARTRATE) [Concomitant]
  4. ALLOPURINOL [Concomitant]
  5. LIPITOR [Concomitant]
  6. ASPIRIN [Concomitant]
  7. CALCIMATE/VITAMIN D (CALCIUM/ERGOCALCIFEROL/VITAMIN D  NOS) [Concomitant]

REACTIONS (1)
  - INTERNATIONAL NORMALISED RATIO INCREASED [None]
